FAERS Safety Report 6068157-7 (Version None)
Quarter: 2009Q1

REPORT INFORMATION
  Report Type: 
  Country: None (occurrence: None)
  Receive Date: 20090206
  Receipt Date: 20090126
  Transmission Date: 20090719
  Serious: Yes (Other)
  Sender: FDA-Public Use
  Company Number: BG-PFIZER INC-2008152898

PATIENT

DRUGS (8)
  1. NORVASC [Suspect]
     Indication: HYPERTENSION
     Dosage: 5 MG, 1X/DAY
     Route: 048
     Dates: start: 20040401
  2. NORVASC [Suspect]
     Indication: MYOCARDIAL ISCHAEMIA
  3. CORVITOL [Concomitant]
     Dosage: UNK
     Route: 048
     Dates: start: 20040401
  4. LOVASTATIN [Concomitant]
     Dosage: UNK
     Route: 048
     Dates: start: 20040401
  5. DEHYDRATIN-NEO [Concomitant]
     Dosage: UNK
     Route: 048
     Dates: start: 20040401
  6. ASPIRIN [Concomitant]
     Dosage: UNK
     Route: 048
     Dates: start: 20040401
  7. ENALAPRIL MALEATE [Concomitant]
     Dosage: UNK
     Route: 048
     Dates: start: 20040401
  8. CLONIDINE W/CHLORTHALIDONE [Concomitant]
     Dosage: UNK
     Route: 048
     Dates: start: 20040401

REACTIONS (2)
  - DEPRESSION [None]
  - SUICIDAL IDEATION [None]
